FAERS Safety Report 5385344-1 (Version None)
Quarter: 2007Q3

REPORT INFORMATION
  Report Type: 
  Country: None (occurrence: None)
  Receive Date: 20070709
  Receipt Date: 20070709
  Transmission Date: 20080115
  Serious: Yes (Other)
  Sender: FDA-Public Use
  Company Number: None

PATIENT
  Age: 46 Year
  Sex: Female
  Weight: 49.8957 kg

DRUGS (1)
  1. BIAFINE TOPICAL EMULSION N/A ORTHONEUGTROGENA [Suspect]
     Indication: RADIOTHERAPY
     Dosage: 1/4 TO 1/2 INCH 3 TIMES DAILY CUTANEOUS
     Route: 003
     Dates: start: 20070528, end: 20070611

REACTIONS (1)
  - NEUROPATHY [None]
